FAERS Safety Report 20578739 (Version 1)
Quarter: 2022Q1

REPORT INFORMATION
  Report Type: Spontaneous
  Country: US (occurrence: None)
  Receive Date: 20220310
  Receipt Date: 20220310
  Transmission Date: 20220423
  Serious: Yes (Life-Threatening)
  Sender: FDA-Public Use
  Company Number: 2022A102942

PATIENT
  Age: 57 Year
  Sex: Male

DRUGS (2)
  1. QUETIAPINE [Suspect]
     Active Substance: QUETIAPINE
     Indication: Suicide attempt
     Route: 048
  2. LAMOTRIGINE [Suspect]
     Active Substance: LAMOTRIGINE
     Indication: Suicide attempt

REACTIONS (4)
  - Overdose [Recovered/Resolved]
  - Suicide attempt [Recovered/Resolved]
  - Distributive shock [Recovered/Resolved]
  - Coma [Recovered/Resolved]
